FAERS Safety Report 20682826 (Version 1)
Quarter: 2022Q2

REPORT INFORMATION
  Report Type: Report from Study
  Country: US (occurrence: US)
  Receive Date: 20220407
  Receipt Date: 20220407
  Transmission Date: 20220720
  Serious: Yes (Hospitalization, Other)
  Sender: FDA-Public Use
  Company Number: US-GILEAD-2022-0576336

PATIENT
  Sex: Female

DRUGS (2)
  1. AMBRISENTAN [Suspect]
     Active Substance: AMBRISENTAN
     Indication: Pulmonary arterial hypertension
     Dosage: 5 MG, QD
     Route: 065
     Dates: start: 20211020
  2. TADALAFIL [Concomitant]
     Active Substance: TADALAFIL

REACTIONS (5)
  - Blood potassium decreased [Unknown]
  - Blood calcium decreased [Unknown]
  - Cellulitis [Unknown]
  - Fluid retention [Unknown]
  - Weight decreased [Unknown]
